FAERS Safety Report 14778373 (Version 1)
Quarter: 2018Q2

REPORT INFORMATION
  Report Type: Spontaneous
  Country: US (occurrence: US)
  Receive Date: 20180412
  Receipt Date: 20180412
  Transmission Date: 20180711
  Serious: Yes (Death, Hospitalization)
  Sender: FDA-Public Use
  Company Number: None

PATIENT
  Age: 60 Year
  Sex: Male
  Weight: 108.7 kg

DRUGS (1)
  1. TEMOZOLOMIDE. [Suspect]
     Active Substance: TEMOZOLOMIDE
     Dates: end: 20171217

REACTIONS (14)
  - Bradycardia [None]
  - Urine output decreased [None]
  - Tachypnoea [None]
  - Pneumonia aspiration [None]
  - Hypotension [None]
  - Sepsis [None]
  - Agitation [None]
  - Respiratory failure [None]
  - Hypertension [None]
  - Cardio-respiratory arrest [None]
  - Seizure [None]
  - Tachycardia [None]
  - Bacterial infection [None]
  - Multiple organ dysfunction syndrome [None]

NARRATIVE: CASE EVENT DATE: 20171217
